FAERS Safety Report 16161731 (Version 4)
Quarter: 2022Q3

REPORT INFORMATION
  Report Type: Spontaneous
  Country: US (occurrence: US)
  Receive Date: 20190405
  Receipt Date: 20220912
  Transmission Date: 20221027
  Serious: No
  Sender: FDA-Public Use
  Company Number: US-PFIZER INC-2019142034

PATIENT
  Age: 64 Year
  Sex: Female
  Weight: 129.73 kg

DRUGS (1)
  1. XELJANZ [Suspect]
     Active Substance: TOFACITINIB CITRATE
     Indication: Rheumatoid arthritis
     Dosage: 5 MG, 2X/DAY
     Dates: start: 2016

REACTIONS (4)
  - Intentional dose omission [Unknown]
  - Sensitivity to weather change [Unknown]
  - Arthropathy [Unknown]
  - Pain [Unknown]

NARRATIVE: CASE EVENT DATE: 20200901
